FAERS Safety Report 13534572 (Version 1)
Quarter: 2017Q2

REPORT INFORMATION
  Report Type: Spontaneous
  Country: US (occurrence: US)
  Receive Date: 20170510
  Receipt Date: 20170510
  Transmission Date: 20170830
  Serious: Yes (Life-Threatening, Hospitalization)
  Sender: FDA-Public Use
  Company Number: None

PATIENT
  Age: 50 Year
  Sex: Female
  Weight: 124.85 kg

DRUGS (1)
  1. LISINOPRIL. [Suspect]
     Active Substance: LISINOPRIL

REACTIONS (10)
  - Urine output decreased [None]
  - Fatigue [None]
  - Dizziness [None]
  - Urticaria [None]
  - Liver disorder [None]
  - Dysphonia [None]
  - Chest pain [None]
  - Dyspnoea [None]
  - Cough [None]
  - Aphonia [None]

NARRATIVE: CASE EVENT DATE: 20150101
